FAERS Safety Report 24740469 (Version 1)
Quarter: 2024Q4

REPORT INFORMATION
  Report Type: Spontaneous
  Country: RS (occurrence: RS)
  Receive Date: 20241216
  Receipt Date: 20241216
  Transmission Date: 20250114
  Serious: Yes (Other)
  Sender: SANDOZ
  Company Number: RS-SANDOZ-SDZ2024RS101040

PATIENT
  Sex: Female

DRUGS (5)
  1. FILGRASTIM [Suspect]
     Active Substance: FILGRASTIM
     Indication: Neutropenia
     Dosage: 5 MG/KG, QD
     Route: 065
  2. DOCETAXEL [Concomitant]
     Active Substance: DOCETAXEL
     Indication: Product used for unknown indication
     Dosage: IV CYCLE UNTIL 03.07.2024
     Route: 065
  3. DOCETAXEL [Concomitant]
     Active Substance: DOCETAXEL
     Dosage: IX-XIII CYCLE
     Route: 065
  4. DOCETAXEL [Concomitant]
     Active Substance: DOCETAXEL
     Dosage: V CYCLE
     Route: 065
     Dates: start: 20240904
  5. DOCETAXEL [Concomitant]
     Active Substance: DOCETAXEL
     Dosage: VIII CYCLE
     Route: 065
     Dates: start: 20241104

REACTIONS (7)
  - Neutropenia [Unknown]
  - Bone pain [Recovering/Resolving]
  - Arthralgia [Recovered/Resolved]
  - Myalgia [Unknown]
  - Diarrhoea [Unknown]
  - Asthenia [Unknown]
  - Malaise [Unknown]
